FAERS Safety Report 21926451 (Version 1)
Quarter: 2023Q1

REPORT INFORMATION
  Report Type: Spontaneous
  Country: US (occurrence: None)
  Receive Date: 20230127
  Receipt Date: 20230127
  Transmission Date: 20230418
  Serious: Yes (Disabling)
  Sender: FDA-Public Use
  Company Number: None

PATIENT
  Age: 18 Year
  Sex: Male
  Weight: 72 kg

DRUGS (1)
  1. INVEGA SUSTENNA [Suspect]
     Active Substance: PALIPERIDONE PALMITATE
     Indication: Schizoaffective disorder
     Dates: start: 20221226

REACTIONS (8)
  - Excessive eye blinking [None]
  - Cognitive disorder [None]
  - Dissociation [None]
  - Speech disorder [None]
  - Impaired driving ability [None]
  - Loss of personal independence in daily activities [None]
  - Extra dose administered [None]
  - Wrong technique in product usage process [None]

NARRATIVE: CASE EVENT DATE: 20230104
